FAERS Safety Report 7363548-6 (Version None)
Quarter: 2011Q1

REPORT INFORMATION
  Report Type: 
  Country: None (occurrence: None)
  Receive Date: 20110321
  Receipt Date: 20110314
  Transmission Date: 20110831
  Serious: Yes (Life-Threatening, Hospitalization, Other)
  Sender: FDA-Public Use
  Company Number: DE-JNJFOC-20110304937

PATIENT
  Sex: Male
  Weight: 82 kg

DRUGS (6)
  1. TAVOR [Suspect]
     Route: 048
  2. HALDOL [Suspect]
     Indication: PROPHYLAXIS
     Route: 048
  3. LEPONEX [Suspect]
     Indication: PROPHYLAXIS
     Route: 048
  4. TAVOR [Suspect]
     Indication: SEDATION
     Route: 048
  5. ERGENYL CHRONO [Concomitant]
     Route: 048
  6. TAVOR [Suspect]
     Route: 048

REACTIONS (2)
  - CONVULSION [None]
  - STATUS EPILEPTICUS [None]
